FAERS Safety Report 9403705 (Version 2)
Quarter: 2013Q3

REPORT INFORMATION
  Report Type: Spontaneous
  Country: IT (occurrence: IT)
  Receive Date: 20130717
  Receipt Date: 20130821
  Transmission Date: 20140515
  Serious: Yes (Life-Threatening)
  Sender: FDA-Public Use
  Company Number: IT-BRISTOL-MYERS SQUIBB COMPANY-19090521

PATIENT
  Age: 70 Year
  Sex: Female

DRUGS (7)
  1. ORENCIA FOR INJ 250 MG/VIAL [Suspect]
     Indication: RHEUMATOID ARTHRITIS
     Dates: start: 200809, end: 201005
  2. URBASON [Concomitant]
     Dosage: 1DF: 1 UNITS;4 MG TAB
  3. SIVASTIN [Concomitant]
     Dosage: 1DF:1 UNITS;40 MG TAB
     Route: 048
  4. MIRAPEXIN [Concomitant]
     Dosage: 1DF:3 UNITS;0.35 MG TAB
     Route: 048
  5. PLAUNAC [Concomitant]
     Dosage: 1DF:1 UNITS;?20 MG TAB
     Route: 048
  6. TENORMIN [Concomitant]
     Dosage: 100 MG;?1DF:1 UNITS
     Route: 048
  7. TIKLID [Concomitant]
     Dosage: 1DF:2 UNITS;?250 MG TAB
     Route: 048

REACTIONS (1)
  - Acute myocardial infarction [Unknown]
